FAERS Safety Report 21775862 (Version 1)
Quarter: 2022Q4

REPORT INFORMATION
  Report Type: Spontaneous
  Country: US (occurrence: US)
  Receive Date: 20221226
  Receipt Date: 20221226
  Transmission Date: 20230113
  Serious: No
  Sender: FDA-Public Use
  Company Number: US-MIGRATION_PFIZER-2022BHV002361

PATIENT
  Age: 52 Year
  Sex: Male
  Weight: 108.96 kg

DRUGS (2)
  1. NURTEC ODT [Suspect]
     Active Substance: RIMEGEPANT SULFATE
     Indication: Migraine
     Dosage: FIRST AND ONLY TABLET TAKEN 06-SEP-2022
     Route: 048
     Dates: start: 20220906
  2. ASPIRIN [Concomitant]
     Active Substance: ASPIRIN
     Indication: Product used for unknown indication
     Dosage: PATIENT CLARIFIED THAT HIS ASPIRIN WAS NOT TAKEN WITH THE NURTEC ON 06-SEP-2022)
     Route: 065

REACTIONS (1)
  - Drug ineffective [Not Recovered/Not Resolved]

NARRATIVE: CASE EVENT DATE: 20220906
